FAERS Safety Report 7392177-3 (Version None)
Quarter: 2011Q2

REPORT INFORMATION
  Report Type: 
  Country: None (occurrence: None)
  Receive Date: 20110404
  Receipt Date: 20110328
  Transmission Date: 20111010
  Serious: Yes (Hospitalization)
  Sender: FDA-Public Use
  Company Number: B0699051A

PATIENT
  Sex: Female

DRUGS (3)
  1. VALTREX [Suspect]
     Indication: HERPES ZOSTER
     Dosage: 3000MG PER DAY
     Route: 048
     Dates: start: 20110203, end: 20110206
  2. CONIEL [Concomitant]
     Route: 048
     Dates: start: 20110203, end: 20110206
  3. ACIROVEC [Suspect]
     Indication: HERPES ZOSTER
     Dosage: 2IUAX PER DAY
     Route: 065
     Dates: start: 20110203, end: 20110206

REACTIONS (3)
  - RENAL IMPAIRMENT [None]
  - URINARY RETENTION [None]
  - ALTERED STATE OF CONSCIOUSNESS [None]
